FAERS Safety Report 6841492-8 (Version None)
Quarter: 2010Q3

REPORT INFORMATION
  Report Type: 
  Country: None (occurrence: None)
  Receive Date: 20100714
  Receipt Date: 20070703
  Transmission Date: 20110219
  Serious: No
  Sender: FDA-Public Use
  Company Number: US-PFIZER INC-2007056142

PATIENT
  Sex: Female

DRUGS (3)
  1. CHANTIX [Suspect]
     Dates: start: 20070101
  2. VITAMINS [Concomitant]
     Indication: PNEUMONIA
  3. ANTIBIOTICS [Concomitant]
     Indication: PNEUMONIA

REACTIONS (2)
  - ABDOMINAL DISCOMFORT [None]
  - FEELING JITTERY [None]
